FAERS Safety Report 8521909-3 (Version None)
Quarter: 2012Q3

REPORT INFORMATION
  Report Type: 
  Country: None (occurrence: None)
  Receive Date: 20120719
  Receipt Date: 20120523
  Transmission Date: 20120928
  Serious: Yes (Other)
  Sender: FDA-Public Use
  Company Number: US-BRISTOL-MYERS SQUIBB COMPANY-16620262

PATIENT

DRUGS (1)
  1. YERVOY [Suspect]

REACTIONS (1)
  - COLITIS [None]
